FAERS Safety Report 11168203 (Version 1)
Quarter: 2015Q2

REPORT INFORMATION
  Report Type: Spontaneous
  Country: US (occurrence: US)
  Receive Date: 20150605
  Receipt Date: 20150605
  Transmission Date: 20150821
  Serious: Yes (Hospitalization, Other)
  Sender: FDA-Public Use
  Company Number: US-JNJFOC-20150516704

PATIENT
  Sex: Female
  Weight: 77.57 kg

DRUGS (6)
  1. DUROGESIC [Suspect]
     Active Substance: FENTANYL
     Indication: PAIN
     Route: 062
     Dates: end: 2014
  2. DUROGESIC [Suspect]
     Active Substance: FENTANYL
     Indication: PAIN
     Dosage: EVERY OTHER DAY
     Route: 062
     Dates: start: 201410
  3. DUROGESIC [Suspect]
     Active Substance: FENTANYL
     Indication: PAIN
     Route: 062
     Dates: start: 1999
  4. DILAUDID [Concomitant]
     Active Substance: HYDROMORPHONE HYDROCHLORIDE
     Route: 065
     Dates: start: 1999
  5. DUROGESIC [Suspect]
     Active Substance: FENTANYL
     Indication: PAIN
     Route: 062
     Dates: start: 2014, end: 2014
  6. DUROGESIC [Suspect]
     Active Substance: FENTANYL
     Indication: PAIN
     Dosage: EVERY OTHER DAY
     Route: 062
     Dates: start: 2014, end: 2014

REACTIONS (14)
  - Renal failure [Not Recovered/Not Resolved]
  - Mastectomy [Unknown]
  - Heart rate increased [Unknown]
  - Wrist fracture [Unknown]
  - Pain [Not Recovered/Not Resolved]
  - Coma [Not Recovered/Not Resolved]
  - Fall [Unknown]
  - Sarcoma [Unknown]
  - Hyperhidrosis [Not Recovered/Not Resolved]
  - Arthropathy [Not Recovered/Not Resolved]
  - Cardiac valve disease [Unknown]
  - Inappropriate schedule of drug administration [Unknown]
  - Visual acuity reduced [Not Recovered/Not Resolved]
  - Rib fracture [Unknown]

NARRATIVE: CASE EVENT DATE: 1999
